FAERS Safety Report 20269310 (Version 1)
Quarter: 2022Q1

REPORT INFORMATION
  Report Type: Spontaneous
  Country: US (occurrence: US)
  Receive Date: 20220101
  Receipt Date: 20220101
  Transmission Date: 20220423
  Serious: No
  Sender: FDA-Public Use
  Company Number: US-COOPERSURGICAL, INC.-US-2021CPS002167

PATIENT
  Age: 17 Year
  Sex: Female
  Weight: 55.782 kg

DRUGS (1)
  1. PARAGARD T 380A [Suspect]
     Active Substance: COPPER
     Indication: Contraception
     Dosage: UNK
     Route: 015
     Dates: start: 20201015, end: 20210622

REACTIONS (5)
  - Coital bleeding [Recovering/Resolving]
  - Abnormal uterine bleeding [Recovering/Resolving]
  - Dyspareunia [Recovered/Resolved]
  - Pain [Recovered/Resolved]
  - Device dislocation [Recovered/Resolved]

NARRATIVE: CASE EVENT DATE: 20210622
